FAERS Safety Report 18539530 (Version 2)
Quarter: 2020Q4

REPORT INFORMATION
  Report Type: Spontaneous
  Country: DE (occurrence: DE)
  Receive Date: 20201124
  Receipt Date: 20201212
  Transmission Date: 20210114
  Serious: Yes (Death)
  Sender: FDA-Public Use
  Company Number: NVSC2020DE312805

PATIENT
  Age: 66 Year
  Sex: Male
  Weight: 88 kg

DRUGS (3)
  1. PEMETREXED. [Suspect]
     Active Substance: PEMETREXED
     Indication: NON-SMALL CELL LUNG CANCER
     Dosage: 1035MG (1035 MG, UNKNOWN)
     Route: 042
     Dates: start: 20200210, end: 20200302
  2. CARBOPLATIN. [Suspect]
     Active Substance: CARBOPLATIN
     Indication: NON-SMALL CELL LUNG CANCER
     Dosage: 535MG (535 MG, UNKNOWN)
     Route: 042
     Dates: start: 20200210, end: 20200302
  3. FOLSAN [Concomitant]
     Active Substance: FOLIC ACID
     Indication: PRODUCT USED FOR UNKNOWN INDICATION
     Dosage: 400 UG, QD (400 UG, DAILY )
     Route: 048
     Dates: start: 20200203

REACTIONS (1)
  - Febrile neutropenia [Fatal]

NARRATIVE: CASE EVENT DATE: 20200309
